FAERS Safety Report 10302323 (Version 1)
Quarter: 2014Q3

REPORT INFORMATION
  Report Type: Spontaneous
  Country: US (occurrence: US)
  Receive Date: 20140714
  Receipt Date: 20140714
  Transmission Date: 20150326
  Serious: Yes (Hospitalization)
  Sender: FDA-Public Use
  Company Number: US-GILEAD-2014-0108513

PATIENT
  Sex: Female

DRUGS (15)
  1. LETAIRIS [Suspect]
     Active Substance: AMBRISENTAN
     Indication: PULMONARY ARTERIAL HYPERTENSION
     Dosage: 10 MG, QD
     Route: 065
     Dates: start: 20120105
  2. XARELTO [Interacting]
     Active Substance: RIVAROXABAN
     Indication: PRODUCT USED FOR UNKNOWN INDICATION
     Route: 065
  3. SILDENAFIL [Concomitant]
     Active Substance: SILDENAFIL
  4. FISH OIL [Concomitant]
     Active Substance: FISH OIL
  5. CRANBERRY                          /01512301/ [Concomitant]
  6. SPIRONOLACTONE. [Concomitant]
     Active Substance: SPIRONOLACTONE
  7. MOTRIN [Interacting]
     Active Substance: IBUPROFEN
     Indication: PRODUCT USED FOR UNKNOWN INDICATION
     Dosage: UNK
     Route: 065
  8. FLONASE [Concomitant]
     Active Substance: FLUTICASONE PROPIONATE
  9. MAGNESIUM [Concomitant]
     Active Substance: MAGNESIUM
  10. LYSINE [Concomitant]
     Active Substance: LYSINE
  11. GLUCOSAMINE [Concomitant]
     Active Substance: GLUCOSAMINE
  12. DIGOXIN. [Concomitant]
     Active Substance: DIGOXIN
  13. FORTEO [Concomitant]
     Active Substance: TERIPARATIDE
  14. FUROSEMIDE. [Concomitant]
     Active Substance: FUROSEMIDE
  15. ADVAIR HFA [Concomitant]
     Active Substance: FLUTICASONE PROPIONATE\SALMETEROL XINAFOATE

REACTIONS (3)
  - Drug interaction [Recovered/Resolved]
  - Epistaxis [Recovered/Resolved]
  - Neuralgia [Recovered/Resolved]
